FAERS Safety Report 12373314 (Version 1)
Quarter: 2016Q2

REPORT INFORMATION
  Report Type: Spontaneous
  Country: FR (occurrence: FR)
  Receive Date: 20160516
  Receipt Date: 20160516
  Transmission Date: 20160815
  Serious: Yes (Hospitalization, Other)
  Sender: FDA-Public Use
  Company Number: FR-009507513-1605FRA005014

PATIENT
  Sex: Male

DRUGS (5)
  1. COVERSYL (PERINDOPRIL ARGININE) [Suspect]
     Active Substance: PERINDOPRIL
     Dosage: 1 DF, QD
     Route: 048
     Dates: start: 201401, end: 20160214
  2. CISPLATIN. [Suspect]
     Active Substance: CISPLATIN
     Dosage: UNK
     Route: 041
     Dates: start: 20151113, end: 20160208
  3. AERIUS [Suspect]
     Active Substance: DESLORATADINE
     Dosage: 1 DF, QD
     Route: 048
     Dates: start: 20160201, end: 20160218
  4. ALIMTA [Suspect]
     Active Substance: PEMETREXED DISODIUM
     Dosage: UNK
     Route: 041
     Dates: start: 20151113, end: 20160208
  5. CORTANCYL [Suspect]
     Active Substance: PREDNISONE
     Dosage: UNK
     Route: 048
     Dates: start: 20160209, end: 20160218

REACTIONS (2)
  - Hyperkalaemia [Recovering/Resolving]
  - Atrioventricular block complete [Recovered/Resolved]
